FAERS Safety Report 13429811 (Version 3)
Quarter: 2017Q3

REPORT INFORMATION
  Report Type: Report from Study
  Country: None (occurrence: US)
  Receive Date: 20170412
  Receipt Date: 20170719
  Transmission Date: 20171127
  Serious: Yes (Other)
  Sender: FDA-Public Use
  Company Number: US-ABBVIE-17K-163-1938003-00

PATIENT
  Age: 69 Year
  Sex: Male

DRUGS (1)
  1. HUMIRA [Suspect]
     Active Substance: ADALIMUMAB
     Indication: PRODUCT USED FOR UNKNOWN INDICATION
     Route: 058
     Dates: start: 20140827

REACTIONS (6)
  - Swelling [Unknown]
  - Bronchospasm [Unknown]
  - Bronchitis [Unknown]
  - Muscle spasms [Unknown]
  - Tooth infection [Unknown]
  - Fatigue [Unknown]

NARRATIVE: CASE EVENT DATE: 20141121
